FAERS Safety Report 16525480 (Version 3)
Quarter: 2019Q3

REPORT INFORMATION
  Report Type: Report from Study
  Country: None (occurrence: IL)
  Receive Date: 20190702
  Receipt Date: 20190927
  Transmission Date: 20191004
  Serious: Yes (Hospitalization)
  Sender: FDA-Public Use
  Company Number: IL-ABBVIE-19K-082-2838786-00

PATIENT
  Sex: Male

DRUGS (6)
  1. DUODOPA [Suspect]
     Active Substance: CARBIDOPA\LEVODOPA
     Indication: PARKINSON^S DISEASE
     Dosage: MORNING DOSE 4.5ML,??CONTINUOUS DOSE 2.1ML/HOUR,??EXTRA DOSE 1.8ML
     Route: 050
  2. DUODOPA [Suspect]
     Active Substance: CARBIDOPA\LEVODOPA
     Dosage: CURRENT MORNING DOSE- 12 ML, CONTINUOUS RATE- 2.1 ML/ HOUR,?CURRENT EXTRA DOSE- 1.8 ML
     Route: 050
  3. KEMADRIN [Suspect]
     Active Substance: PROCYCLIDINE HYDROCHLORIDE
     Indication: PRODUCT USED FOR UNKNOWN INDICATION
     Route: 065
  4. DUODOPA [Suspect]
     Active Substance: CARBIDOPA\LEVODOPA
     Dosage: CONTINUOUS DOSE DOSE INCREASED
     Route: 050
  5. KEMADRIN [Suspect]
     Active Substance: PROCYCLIDINE HYDROCHLORIDE
     Route: 065
  6. DUODOPA [Suspect]
     Active Substance: CARBIDOPA\LEVODOPA
     Route: 050
     Dates: start: 20160604

REACTIONS (5)
  - Spinal cord operation [Recovered/Resolved]
  - Urinary retention [Not Recovered/Not Resolved]
  - Tremor [Unknown]
  - Back pain [Recovering/Resolving]
  - On and off phenomenon [Unknown]
